FAERS Safety Report 4612389-9 (Version None)
Quarter: 2005Q1

REPORT INFORMATION
  Report Type: 
  Country: None (occurrence: None)
  Receive Date: 20050316
  Receipt Date: 20050227
  Transmission Date: 20050727
  Serious: Yes (Hospitalization, Other)
  Sender: FDA-Public Use
  Company Number: USA040876274

PATIENT
  Age: 65 Year
  Sex: Male

DRUGS (3)
  1. FORTEO [Suspect]
     Indication: OSTEOPOROSIS
     Dosage: 20 UG DAY
     Dates: start: 20030801
  2. PREDNISONE [Concomitant]
  3. C-7 [Concomitant]

REACTIONS (6)
  - CONDITION AGGRAVATED [None]
  - DEVICE MALFUNCTION [None]
  - GLYCOGEN STORAGE DISEASE TYPE II [None]
  - PHARMACEUTICAL PRODUCT COMPLAINT [None]
  - PNEUMONIA ASPIRATION [None]
  - RESPIRATORY FAILURE [None]
